FAERS Safety Report 8241799-6 (Version None)
Quarter: 2012Q1

REPORT INFORMATION
  Report Type: 
  Country: None (occurrence: None)
  Receive Date: 20120328
  Receipt Date: 20120321
  Transmission Date: 20120608
  Serious: Yes (Other)
  Sender: FDA-Public Use
  Company Number: US-AMGEN-USASP2012016203

PATIENT
  Sex: Female
  Weight: 54.422 kg

DRUGS (6)
  1. FAMOTIDINE [Concomitant]
     Indication: GASTROOESOPHAGEAL REFLUX DISEASE
     Dosage: 40 MG, QD
     Route: 048
  2. CLONAZEPAM [Concomitant]
     Indication: ANXIETY
     Dosage: 1 MG, BID
  3. VITAMIN D [Concomitant]
     Indication: VITAMIN D DEFICIENCY
     Dosage: UNK UNK, QWK
     Route: 048
     Dates: start: 20110201
  4. PROZAC [Concomitant]
     Indication: DEPRESSION
     Dosage: 40 MG, QD
     Route: 048
  5. NORCO [Concomitant]
     Indication: PAIN
     Dosage: UNK UNK, BID
     Dates: start: 20070101
  6. PROLIA [Suspect]
     Indication: OSTEOPOROSIS POSTMENOPAUSAL
     Dosage: 60 MG, Q6MO
     Route: 058
     Dates: start: 20110202, end: 20120313

REACTIONS (5)
  - GASTROINTESTINAL DISORDER [None]
  - PAIN IN JAW [None]
  - DENTAL CARE [None]
  - TOOTHACHE [None]
  - LOOSE TOOTH [None]
